FAERS Safety Report 7218564-1 (Version None)
Quarter: 2011Q1

REPORT INFORMATION
  Report Type: 
  Country: None (occurrence: None)
  Receive Date: 20110110
  Receipt Date: 20110103
  Transmission Date: 20110831
  Serious: Yes (Other)
  Sender: FDA-Public Use
  Company Number: DE-PFIZER INC-2010163310

PATIENT
  Age: 71 Year
  Sex: Female
  Weight: 55 kg

DRUGS (3)
  1. LYRICA [Suspect]
     Dosage: 75 MG, UNK
     Route: 048
     Dates: start: 20100626, end: 20100710
  2. LYRICA [Suspect]
     Dosage: 100 MG, UNK
     Route: 048
     Dates: start: 20100823, end: 20101129
  3. LYRICA [Suspect]
     Indication: POLYNEUROPATHY
     Dosage: 50 MG DAILY
     Route: 048
     Dates: start: 20100604, end: 20100625

REACTIONS (1)
  - LEUKOCYTOCLASTIC VASCULITIS [None]
